FAERS Safety Report 9052951 (Version 4)
Quarter: 2013Q3

REPORT INFORMATION
  Report Type: Spontaneous
  Country: GR (occurrence: GR)
  Receive Date: 20130208
  Receipt Date: 20130924
  Transmission Date: 20140515
  Serious: Yes (Other)
  Sender: FDA-Public Use
  Company Number: GR-AMGEN-GRCSP2013008475

PATIENT
  Sex: Female

DRUGS (2)
  1. ENBREL [Suspect]
     Indication: RHEUMATOID ARTHRITIS
     Dosage: 50 MG, UNK
     Route: 065
     Dates: end: 201212
  2. ENBREL [Suspect]
     Dosage: UNK
     Route: 065
     Dates: start: 20130304, end: 20130901

REACTIONS (2)
  - Mental impairment [Not Recovered/Not Resolved]
  - Drug ineffective [Unknown]
